FAERS Safety Report 11231604 (Version 1)
Quarter: 2015Q3

REPORT INFORMATION
  Report Type: Spontaneous
  Country: US (occurrence: US)
  Receive Date: 20150701
  Receipt Date: 20150701
  Transmission Date: 20151125
  Serious: Yes (Other)
  Sender: FDA-Public Use
  Company Number: US-JNJFOC-20150618445

PATIENT
  Sex: Female
  Weight: 101.15 kg

DRUGS (1)
  1. REMICADE [Suspect]
     Active Substance: INFLIXIMAB
     Indication: COLITIS ULCERATIVE
     Route: 042
     Dates: start: 2008, end: 201011

REACTIONS (3)
  - Exposure during pregnancy [Recovered/Resolved]
  - Breech presentation [Recovered/Resolved]
  - Coital bleeding [Unknown]

NARRATIVE: CASE EVENT DATE: 2010
